FAERS Safety Report 16823738 (Version 1)
Quarter: 2019Q3

REPORT INFORMATION
  Report Type: Spontaneous
  Country: US (occurrence: US)
  Receive Date: 20190918
  Receipt Date: 20190918
  Transmission Date: 20191005
  Serious: No
  Sender: FDA-Public Use
  Company Number: US-SA-2019SA255863

PATIENT

DRUGS (1)
  1. FERRLECIT [Suspect]
     Active Substance: SODIUM FERRIC GLUCONATE COMPLEX
     Dosage: 125 MG
     Dates: start: 20190910

REACTIONS (4)
  - Haemoglobin decreased [Unknown]
  - Platelet count decreased [Unknown]
  - Blood iron decreased [Unknown]
  - Haematocrit decreased [Unknown]
